FAERS Safety Report 10794010 (Version 1)
Quarter: 2015Q1

REPORT INFORMATION
  Report Type: Spontaneous
  Country: BR (occurrence: BR)
  Receive Date: 20150213
  Receipt Date: 20150213
  Transmission Date: 20150721
  Serious: Yes (Hospitalization)
  Sender: FDA-Public Use
  Company Number: BR-ABBVIE-15P-020-1347244-00

PATIENT
  Sex: Male
  Weight: 25 kg

DRUGS (7)
  1. DEPAKENE [Suspect]
     Active Substance: VALPROIC ACID
     Dosage: 15ML; 7.5ML IN THE MORNING AND 7.5ML AT NIGHT
     Route: 048
  2. DEPAKENE [Suspect]
     Active Substance: VALPROIC ACID
     Dosage: 5ML; 2.5ML IN THE MORNING AND 2.5ML AT NIGHT
     Route: 048
     Dates: start: 201501, end: 201501
  3. DEPAKENE [Suspect]
     Active Substance: VALPROIC ACID
     Dosage: 10ML; 5ML IN THE MORNING AND 5ML AT NIGHT
     Route: 048
     Dates: start: 201501
  4. RITALIN [Concomitant]
     Active Substance: METHYLPHENIDATE HYDROCHLORIDE
     Route: 048
  5. DEPAKENE [Suspect]
     Active Substance: VALPROIC ACID
     Indication: SEIZURE
     Dosage: 5ML; 2.5ML IN THE MORNING AND 2.5ML AT NIGHT
     Route: 048
     Dates: start: 2009
  6. DEPAKENE [Suspect]
     Active Substance: VALPROIC ACID
     Dosage: 10ML; 5ML IN THE MORNING AND 5ML AT NIGHT
     Route: 048
  7. RITALIN [Concomitant]
     Active Substance: METHYLPHENIDATE HYDROCHLORIDE
     Indication: ATTENTION DEFICIT/HYPERACTIVITY DISORDER
     Route: 048
     Dates: start: 2012

REACTIONS (7)
  - Pyrexia [Recovered/Resolved]
  - Drug-induced liver injury [Recovered/Resolved]
  - Product use issue [Unknown]
  - Chromaturia [Recovered/Resolved]
  - Abdominal pain [Recovered/Resolved]
  - Abdominal distension [Recovered/Resolved]
  - Infectious mononucleosis [Unknown]

NARRATIVE: CASE EVENT DATE: 2009
